FAERS Safety Report 22091495 (Version 2)
Quarter: 2023Q2

REPORT INFORMATION
  Report Type: Spontaneous
  Country: FR (occurrence: None)
  Receive Date: 20230314
  Receipt Date: 20230407
  Transmission Date: 20230722
  Serious: Yes (Other)
  Sender: FDA-Public Use
  Company Number: FR-Merck KGaA-9011623

PATIENT
  Age: 66 Year
  Sex: Female
  Weight: 80 kg

DRUGS (4)
  1. LEVOTHYROXINE SODIUM [Suspect]
     Active Substance: LEVOTHYROXINE SODIUM
     Indication: Hypothyroidism
     Dates: end: 201712
  2. EUTHYROX [Suspect]
     Active Substance: LEVOTHYROXINE SODIUM
     Indication: Hypothyroidism
     Dosage: THERAPY START DATE: 27 DEC 2017
     Dates: end: 20230201
  3. IRBESARTAN [Concomitant]
     Active Substance: IRBESARTAN
     Indication: Hypertension
  4. ESOMEPRAZOLE MAGNESIUM [Concomitant]
     Active Substance: ESOMEPRAZOLE MAGNESIUM
     Indication: Dyspepsia

REACTIONS (30)
  - Rectal haemorrhage [Unknown]
  - Carotid arteriosclerosis [Unknown]
  - Vasodilatation [Unknown]
  - Balance disorder [Unknown]
  - Gait disturbance [Unknown]
  - Vision blurred [Unknown]
  - Cardiac murmur [Unknown]
  - Blood pressure increased [Unknown]
  - Urinary tract infection [Unknown]
  - Renal cyst [Unknown]
  - Hiatus hernia [Unknown]
  - Diverticulum intestinal [Unknown]
  - Tendon rupture [Unknown]
  - Vitamin D decreased [Recovered/Resolved]
  - Blood cholesterol increased [Not Recovered/Not Resolved]
  - Low density lipoprotein increased [Not Recovered/Not Resolved]
  - Blood thyroid stimulating hormone increased [Unknown]
  - Anxiety [Unknown]
  - Libido decreased [Recovering/Resolving]
  - Asthenia [Recovered/Resolved]
  - Dyspepsia [Recovered/Resolved]
  - Fatigue [Unknown]
  - Alopecia [Not Recovered/Not Resolved]
  - Weight increased [Unknown]
  - Abdominal pain upper [Unknown]
  - Hyperhidrosis [Recovering/Resolving]
  - Insomnia [Recovered/Resolved]
  - Palpitations [Recovered/Resolved]
  - Hot flush [Unknown]
  - Rash macular [Unknown]

NARRATIVE: CASE EVENT DATE: 20170101
